FAERS Safety Report 7585505-7 (Version None)
Quarter: 2011Q2

REPORT INFORMATION
  Report Type: 
  Country: None (occurrence: None)
  Receive Date: 20110628
  Receipt Date: 20110628
  Transmission Date: 20111010
  Serious: Yes (Disabling)
  Sender: FDA-Public Use
  Company Number: None

PATIENT
  Sex: Male
  Weight: 25.855 kg

DRUGS (1)
  1. COLCRYS [Suspect]
     Indication: FAMILIAL MEDITERRANEAN FEVER
     Dosage: COLERYS .6MG 1X/DAY BY MOUTH
     Route: 048
     Dates: start: 20110127

REACTIONS (2)
  - URINARY INCONTINENCE [None]
  - POLLAKIURIA [None]
